FAERS Safety Report 8050705-9 (Version None)
Quarter: 2012Q1

REPORT INFORMATION
  Report Type: 
  Country: None (occurrence: None)
  Receive Date: 20120117
  Receipt Date: 20120117
  Transmission Date: 20120608
  Serious: No
  Sender: FDA-Public Use
  Company Number: None

PATIENT
  Age: 34 Year
  Sex: Female
  Weight: 63.502 kg

DRUGS (1)
  1. IMPLANON [Suspect]
     Dates: start: 20110906, end: 20120115

REACTIONS (1)
  - OLIGOMENORRHOEA [None]
